FAERS Safety Report 18505770 (Version 10)
Quarter: 2024Q1

REPORT INFORMATION
  Report Type: Spontaneous
  Country: US (occurrence: US)
  Receive Date: 20201116
  Receipt Date: 20240216
  Transmission Date: 20240409
  Serious: Yes (Other)
  Sender: FDA-Public Use
  Company Number: US-PFIZER INC-2019462781

PATIENT
  Age: 67 Year
  Sex: Female
  Weight: 82.55 kg

DRUGS (5)
  1. PREMARIN [Suspect]
     Active Substance: ESTROGENS, CONJUGATED
     Indication: Urinary tract infection
     Dosage: 1 GRAM, 3X/WEEK (3 TUBES)
     Route: 067
  2. PREMARIN [Suspect]
     Active Substance: ESTROGENS, CONJUGATED
     Dosage: UNK, (THREE TIMES WEEKLY)
     Route: 067
  3. PREMARIN [Suspect]
     Active Substance: ESTROGENS, CONJUGATED
     Dosage: 1 GRAM, THREE TIMES A WEEK
     Route: 067
  4. PREMARIN [Suspect]
     Active Substance: ESTROGENS, CONJUGATED
     Dosage: 0.1 MG, WEEKLY (1 X A WEEK)
  5. RYBELSUS [Concomitant]
     Active Substance: SEMAGLUTIDE
     Indication: Diabetes mellitus
     Dosage: UNK

REACTIONS (12)
  - Joint dislocation [Recovering/Resolving]
  - Urinary tract infection [Unknown]
  - Fall [Unknown]
  - Joint injury [Unknown]
  - Clumsiness [Unknown]
  - Road traffic accident [Unknown]
  - Drug effective for unapproved indication [Unknown]
  - Off label use [Unknown]
  - Expired product administered [Unknown]
  - Product dispensing error [Unknown]
  - Off label use [Unknown]
  - Product prescribing error [Unknown]

NARRATIVE: CASE EVENT DATE: 20200101
